FAERS Safety Report 21685658 (Version 1)
Quarter: 2022Q4

REPORT INFORMATION
  Report Type: Spontaneous
  Country: FR (occurrence: FR)
  Receive Date: 20221206
  Receipt Date: 20221206
  Transmission Date: 20230113
  Serious: Yes (Hospitalization, Other)
  Sender: FDA-Public Use
  Company Number: None

PATIENT
  Age: 28 Year
  Sex: Male

DRUGS (1)
  1. ZOLPIDEM TARTRATE [Suspect]
     Active Substance: ZOLPIDEM TARTRATE
     Dosage: 70 MG/J
     Route: 048
     Dates: start: 2014

REACTIONS (2)
  - Drug dependence [Not Recovered/Not Resolved]
  - Drug detoxification [Not Recovered/Not Resolved]

NARRATIVE: CASE EVENT DATE: 20140101
